FAERS Safety Report 9165103 (Version 5)
Quarter: 2013Q2

REPORT INFORMATION
  Report Type: Report from Study
  Country: US (occurrence: US)
  Receive Date: 20130315
  Receipt Date: 20130516
  Transmission Date: 20140414
  Serious: No
  Sender: FDA-Public Use
  Company Number: US-VERTEX PHARMACEUTICALS INC.-2013-003587

PATIENT
  Age: 62 Year
  Sex: Female
  Weight: 59 kg

DRUGS (12)
  1. VX-950 (TELAPREVIR) [Suspect]
     Indication: HEPATITIS C
     Dosage: 750 MG, TID
     Route: 048
     Dates: start: 20130307
  2. PEGASYS [Suspect]
     Indication: HEPATITIS C
     Dosage: 180 ?G, QW
     Dates: start: 20130307
  3. RIBAVIRIN [Suspect]
     Indication: HEPATITIS C
     Dosage: 400 MG IN AM; 600 MG IN PM
     Dates: start: 20130307, end: 20130401
  4. RIBAVIRIN [Suspect]
     Dosage: 200 MG IN AM; 400 MG IN PM
     Dates: start: 20130401
  5. CRANBERRY [Concomitant]
  6. LEXAPRO [Concomitant]
     Dosage: 10 MG, UNK
  7. ZOFRAN [Concomitant]
     Dosage: 4 MG, UNK
  8. LYRICA [Concomitant]
     Dosage: 150 MG, UNK
  9. MOBIC [Concomitant]
     Dosage: 15 MG, UNK
  10. FOSAMAX [Concomitant]
     Dosage: 10 MG, UNK
  11. FISH OIL [Concomitant]
  12. VITAMIN B6 [Concomitant]
     Dosage: 50 MG, UNK

REACTIONS (7)
  - Anxiety [Unknown]
  - Decreased appetite [Unknown]
  - Haemoglobin decreased [Unknown]
  - Rash [Unknown]
  - Diarrhoea [Unknown]
  - Vomiting [Unknown]
  - Nausea [Unknown]
